FAERS Safety Report 12717425 (Version 3)
Quarter: 2018Q2

REPORT INFORMATION
  Report Type: Report from Study
  Country: KR (occurrence: KR)
  Receive Date: 20160906
  Receipt Date: 20180425
  Transmission Date: 20180711
  Serious: Yes (Hospitalization, Other)
  Sender: FDA-Public Use
  Company Number: KR-GLAXOSMITHKLINE-KR2016GSK126120

PATIENT
  Age: 78 Year
  Sex: Male
  Weight: 70.5 kg

DRUGS (6)
  1. DICHLOZID [Concomitant]
     Indication: HYPERTENSION
     Dosage: 25 MG, 1D
     Route: 048
     Dates: start: 20151208
  2. STILNOX [Concomitant]
     Active Substance: ZOLPIDEM TARTRATE
     Indication: INSOMNIA
     Dosage: 10 MG, 1D
     Dates: start: 20160712
  3. UMECLIDINIUM BR+VILANTEROL TRIFENATATE [Suspect]
     Active Substance: UMECLIDINIUM BROMIDE\VILANTEROL TRIFENATATE
     Indication: CHRONIC OBSTRUCTIVE PULMONARY DISEASE
     Dosage: 25 MG, 1D
     Route: 055
     Dates: start: 20160714
  4. LIPITOR [Concomitant]
     Active Substance: ATORVASTATIN CALCIUM
     Indication: ARTERIOSCLEROSIS
     Dosage: 10 MG, 1D
     Route: 048
     Dates: start: 20151110
  5. EXONE [Concomitant]
     Indication: HYPERTENSION
     Dosage: 5/80 MG 1D
     Dates: start: 20151208
  6. TRAJENTA [Concomitant]
     Active Substance: LINAGLIPTIN
     Indication: DIABETES MELLITUS
     Dosage: 5 MG, 1D
     Route: 048
     Dates: start: 20151102

REACTIONS (1)
  - Subcutaneous abscess [Recovered/Resolved]

NARRATIVE: CASE EVENT DATE: 20160817
